FAERS Safety Report 6835483-0 (Version None)
Quarter: 2010Q3

REPORT INFORMATION
  Report Type: 
  Country: None (occurrence: None)
  Receive Date: 20100713
  Receipt Date: 20100629
  Transmission Date: 20110219
  Serious: Yes (Other)
  Sender: FDA-Public Use
  Company Number: PHHY2010DE43174

PATIENT
  Age: 76 Year
  Sex: Male

DRUGS (1)
  1. ZOLEDRONATE [Suspect]
     Indication: PROSTATE CANCER
     Route: 065

REACTIONS (5)
  - ACTINOMYCOSIS [None]
  - BONE DISORDER [None]
  - BONE LESION EXCISION [None]
  - IMPAIRED HEALING [None]
  - OSTEONECROSIS OF JAW [None]
